FAERS Safety Report 16236850 (Version 1)
Quarter: 2019Q2

REPORT INFORMATION
  Report Type: Spontaneous
  Country: CA (occurrence: CA)
  Receive Date: 20190425
  Receipt Date: 20190425
  Transmission Date: 20190711
  Serious: Yes (Death)
  Sender: FDA-Public Use
  Company Number: CA-TEVA-2019-CA-1041476

PATIENT
  Age: 17 Year
  Sex: Female

DRUGS (7)
  1. ANTI HUMAN LYMPHOCYTE GLOBULIN EQUINEEQUINE [Concomitant]
     Indication: IMMUNOSUPPRESSANT DRUG THERAPY
  2. AZATHIOPRINE. [Concomitant]
     Active Substance: AZATHIOPRINE
     Indication: IMMUNOSUPPRESSANT DRUG THERAPY
     Dosage: 2.5 MG/KG DAILY;
  3. ACYCLOVIR. [Suspect]
     Active Substance: ACYCLOVIR
     Indication: EPSTEIN-BARR VIRUS INFECTION
     Route: 065
  4. CICLOSPORIN [Concomitant]
     Active Substance: CYCLOSPORINE
     Indication: IMMUNOSUPPRESSANT DRUG THERAPY
     Dosage: 5 MG/KG DAILY;
  5. CYTOMEGALOVIRUS IMMUNE GLOBULIN(HUMAN) [Concomitant]
  6. PREDNISONE. [Concomitant]
     Active Substance: PREDNISONE
     Indication: IMMUNOSUPPRESSANT DRUG THERAPY
     Dosage: 2 MG/KG DAILY;
  7. ACYCLOVIR. [Suspect]
     Active Substance: ACYCLOVIR
     Indication: VIRAL INFECTION
     Route: 042

REACTIONS (1)
  - Drug ineffective [Fatal]
